FAERS Safety Report 7791613-8 (Version None)
Quarter: 2011Q4

REPORT INFORMATION
  Report Type: 
  Country: None (occurrence: None)
  Receive Date: 20111003
  Receipt Date: 20110922
  Transmission Date: 20120403
  Serious: Yes (Hospitalization)
  Sender: FDA-Public Use
  Company Number: JP-CELGENEUS-087-21880-11040356

PATIENT
  Sex: Male

DRUGS (31)
  1. DEXAMETHASONE [Suspect]
     Dosage: 4 MILLIGRAM
     Route: 048
     Dates: start: 20110504, end: 20110518
  2. SELBEX [Concomitant]
     Indication: PROPHYLAXIS
     Dosage: 100 MILLIGRAM
     Route: 048
     Dates: start: 20101221, end: 20110101
  3. DEXAMETHASONE [Suspect]
     Dosage: 4 MILLIGRAM
     Route: 048
     Dates: start: 20110310, end: 20110324
  4. DEXAMETHASONE [Suspect]
     Dosage: 4 MILLIGRAM
     Route: 048
     Dates: start: 20110608, end: 20110615
  5. ZOVIRAX [Concomitant]
     Dosage: 220 MILLIGRAM
     Route: 048
     Dates: start: 20110211
  6. FAMOTIDINE [Concomitant]
     Indication: PROPHYLAXIS
     Dosage: 20 MILLIGRAM
     Route: 048
     Dates: start: 20101223
  7. URIEF [Concomitant]
     Dosage: 8 MILLIGRAM
     Route: 048
     Dates: start: 20100524
  8. ZOMETA [Concomitant]
     Dosage: 4 MILLIGRAM
     Route: 041
     Dates: start: 20110516, end: 20110518
  9. FLUCONAZOLE [Concomitant]
     Indication: PROPHYLAXIS
     Dosage: 100 MILLIGRAM
     Route: 048
     Dates: start: 20110715
  10. REVLIMID [Suspect]
     Indication: MULTIPLE MYELOMA
     Dosage: 10 MILLIGRAM
     Route: 048
     Dates: start: 20110113, end: 20110202
  11. REVLIMID [Suspect]
     Dosage: 10 MILLIGRAM
     Route: 048
     Dates: start: 20110608, end: 20110621
  12. DEXAMETHASONE [Suspect]
     Dosage: 4 MILLIGRAM
     Route: 048
     Dates: start: 20100210, end: 20110224
  13. DEXAMETHASONE [Suspect]
     Dosage: 4 MILLIGRAM
     Route: 048
     Dates: start: 20110406, end: 20110420
  14. PURSENNID [Concomitant]
     Dosage: 24 MILLIGRAM
     Route: 048
     Dates: start: 20100420
  15. OXYCONTIN [Concomitant]
     Dosage: 5-30 MG
     Route: 048
     Dates: start: 20110630
  16. REVLIMID [Suspect]
     Dosage: 10 MILLIGRAM
     Route: 048
     Dates: start: 20110310, end: 20110329
  17. ZOVIRAX [Concomitant]
     Indication: PROPHYLAXIS
     Dosage: 200 MILLIGRAM
     Route: 048
     Dates: start: 20110121, end: 20110128
  18. SULFAMETHOXAZOLE [Concomitant]
     Indication: PROPHYLAXIS
     Dosage: .5 TABLET
     Route: 048
     Dates: start: 20091030
  19. ZOMETA [Concomitant]
     Dosage: 4 MILLIGRAM
     Route: 041
     Dates: start: 20110725, end: 20110725
  20. DEXAMETHASONE [Suspect]
     Indication: MULTIPLE MYELOMA
     Dosage: 8 MILLIGRAM
     Route: 048
     Dates: start: 20110113, end: 20110201
  21. ASPIRIN [Concomitant]
     Indication: PROPHYLAXIS
     Dosage: 100 MILLIGRAM
     Route: 048
     Dates: start: 20101223, end: 20110714
  22. ZOLPIDEM [Concomitant]
     Dosage: 5 MILLIGRAM
     Route: 048
     Dates: start: 20100108
  23. REVLIMID [Suspect]
     Dosage: 10 MILLIGRAM
     Route: 048
     Dates: start: 20110504, end: 20110524
  24. SELTOUCH [Concomitant]
     Route: 061
     Dates: start: 20110104, end: 20110101
  25. SELTOUCH [Concomitant]
     Route: 061
     Dates: start: 20110526
  26. URSO 250 [Concomitant]
     Indication: PROPHYLAXIS
     Dosage: 600 MILLIGRAM
     Route: 048
     Dates: start: 20110128, end: 20110420
  27. LAXOBERON [Concomitant]
     Route: 048
     Dates: start: 20110707
  28. REVLIMID [Suspect]
     Dosage: 10 MILLIGRAM
     Route: 048
     Dates: start: 20110210, end: 20110302
  29. REVLIMID [Suspect]
     Dosage: 10 MILLIGRAM
     Route: 048
     Dates: start: 20110406, end: 20110426
  30. LOXONIN [Concomitant]
     Dosage: 120 MILLIGRAM
     Route: 048
     Dates: start: 20101215
  31. ZOMETA [Concomitant]
     Dosage: 4 MILLIGRAM
     Route: 041
     Dates: start: 20110622, end: 20110622

REACTIONS (11)
  - DRY SKIN [None]
  - NEUTROPHIL COUNT DECREASED [None]
  - PYREXIA [None]
  - PLATELET COUNT DECREASED [None]
  - BONE PAIN [None]
  - LIVER DISORDER [None]
  - PNEUMONIA [None]
  - WHITE BLOOD CELL COUNT DECREASED [None]
  - C-REACTIVE PROTEIN INCREASED [None]
  - OEDEMA PERIPHERAL [None]
  - HYPERGLYCAEMIA [None]
